FAERS Safety Report 8493660-X (Version None)
Quarter: 2012Q3

REPORT INFORMATION
  Report Type: 
  Country: None (occurrence: None)
  Receive Date: 20120706
  Receipt Date: 20120629
  Transmission Date: 20120928
  Serious: Yes (Hospitalization)
  Sender: FDA-Public Use
  Company Number: JP-ABBOTT-12P-087-0951240-00

PATIENT
  Sex: Female
  Weight: 27 kg

DRUGS (7)
  1. CLARITHROMYCIN [Suspect]
     Indication: HELICOBACTER INFECTION
     Route: 048
     Dates: start: 20120602, end: 20120608
  2. AMOXICILLIN [Suspect]
     Indication: HELICOBACTER INFECTION
     Route: 048
     Dates: start: 20120602, end: 20120608
  3. FAMOTIDINE [Concomitant]
     Indication: GASTRIC ULCER
     Route: 048
     Dates: start: 20090101
  4. DIGOXIN [Concomitant]
     Indication: HYPERTENSION
     Route: 048
  5. LANSOPRAZOLE [Concomitant]
     Indication: HELICOBACTER INFECTION
     Route: 048
     Dates: start: 20120602, end: 20120608
  6. DIOVAN [Concomitant]
     Indication: HYPERTENSION
     Route: 048
  7. LENDORMIN [Concomitant]
     Indication: INSOMNIA
     Route: 048

REACTIONS (1)
  - ERYTHEMA MULTIFORME [None]
